FAERS Safety Report 4435144-1 (Version None)
Quarter: 2004Q3

REPORT INFORMATION
  Report Type: 
  Country: None (occurrence: None)
  Receive Date: 20040827
  Receipt Date: 20030624
  Transmission Date: 20050211
  Serious: Yes (Other)
  Sender: FDA-Public Use
  Company Number: JP-MERCK-0306USA02911

PATIENT
  Age: 70 Year
  Sex: Female
  Weight: 47 kg

DRUGS (4)
  1. FOSAMAX [Suspect]
     Indication: OSTEOPOROSIS
     Route: 048
     Dates: start: 20030404, end: 20030609
  2. AMANTADINE HYDROCHLORIDE [Concomitant]
     Route: 065
  3. PAROXETINE HYDROCHLORIDE [Concomitant]
     Route: 065
  4. ZOLPIDEM TARTRATE [Concomitant]
     Route: 065

REACTIONS (13)
  - CHEILITIS [None]
  - DERMATITIS EXFOLIATIVE [None]
  - ECZEMA [None]
  - ERYTHEMA [None]
  - HOARSENESS [None]
  - LARYNGEAL DISCOMFORT [None]
  - LOCALISED EXFOLIATION [None]
  - ORAL DISCOMFORT [None]
  - PHARYNGEAL ERYTHEMA [None]
  - RASH [None]
  - SKIN SWELLING [None]
  - STOMATITIS [None]
  - SWELLING FACE [None]
